FAERS Safety Report 14727130 (Version 3)
Quarter: 2018Q2

REPORT INFORMATION
  Report Type: Spontaneous
  Country: ES (occurrence: ES)
  Receive Date: 20180406
  Receipt Date: 20180524
  Transmission Date: 20180711
  Serious: Yes (Death)
  Sender: FDA-Public Use
  Company Number: ES-CELGENEUS-ESP-20180308902

PATIENT
  Age: 58 Year
  Sex: Female

DRUGS (2)
  1. ENASIDENIB [Suspect]
     Active Substance: ENASIDENIB
     Indication: CHLOROMA
     Dosage: 100 MILLIGRAM
     Route: 048
     Dates: start: 20170904, end: 20171026
  2. ENASIDENIB [Suspect]
     Active Substance: ENASIDENIB
     Indication: CHLOROMA

REACTIONS (1)
  - Chloroma [Fatal]
